FAERS Safety Report 5716222-3 (Version None)
Quarter: 2008Q2

REPORT INFORMATION
  Report Type: 
  Country: None (occurrence: None)
  Receive Date: 20080424
  Receipt Date: 20080415
  Transmission Date: 20081010
  Serious: Yes (Hospitalization)
  Sender: FDA-Public Use
  Company Number: IT-ABBOTT-06P-083-0341600-00

PATIENT
  Sex: Female
  Weight: 90 kg

DRUGS (11)
  1. HUMIRA [Suspect]
     Indication: RHEUMATOID ARTHRITIS
     Route: 058
     Dates: start: 20050601, end: 20050615
  2. HUMIRA [Suspect]
     Dates: start: 20050906, end: 20060701
  3. PREDNISONE [Concomitant]
     Indication: RHEUMATOID ARTHRITIS
     Dates: start: 20001001
  4. METHOTREXATE [Concomitant]
     Indication: RHEUMATOID ARTHRITIS
     Dates: start: 20030827
  5. FOLIC ACID [Concomitant]
     Indication: RHEUMATOID ARTHRITIS
     Dates: start: 20030827
  6. LEVOTHYROXINE SODIUM [Concomitant]
     Indication: HYPOTHYROIDISM
     Dates: start: 19990901
  7. ACETYLCYSTEINE [Concomitant]
     Indication: BRONCHITIS CHRONIC
     Dates: start: 20050601
  8. AMLODIPINE BESILATE [Concomitant]
     Indication: HYPERTENSION
  9. ATENOLOL [Concomitant]
     Indication: ANGINA PECTORIS
  10. DERMATRANS [Concomitant]
     Indication: ANGINA PECTORIS
  11. TICLOPIDINE HYDROCHLORIDE [Concomitant]
     Indication: THROMBOSIS PROPHYLAXIS

REACTIONS (1)
  - CHRONIC OBSTRUCTIVE PULMONARY DISEASE [None]
